FAERS Safety Report 7213172-0 (Version None)
Quarter: 2011Q1

REPORT INFORMATION
  Report Type: 
  Country: None (occurrence: None)
  Receive Date: 20110106
  Receipt Date: 20101228
  Transmission Date: 20110831
  Serious: Yes (Other)
  Sender: FDA-Public Use
  Company Number: US-RB-018065-11

PATIENT
  Age: 75 Year
  Sex: Female

DRUGS (1)
  1. MUCINEX [Suspect]
     Dosage: PRODUCT TAKEN ON 27-DEC-2010.
     Route: 048

REACTIONS (1)
  - BLOOD PRESSURE INCREASED [None]
